FAERS Safety Report 8525858-6 (Version None)
Quarter: 2012Q3

REPORT INFORMATION
  Report Type: 
  Country: None (occurrence: None)
  Receive Date: 20120720
  Receipt Date: 20120712
  Transmission Date: 20120928
  Serious: Yes (Hospitalization)
  Sender: FDA-Public Use
  Company Number: US-ELI_LILLY_AND_COMPANY-US201107000859

PATIENT
  Sex: Female

DRUGS (8)
  1. SIMVASTATIN [Concomitant]
     Indication: PRODUCT USED FOR UNKNOWN INDICATION
     Dosage: 40 MG, UNK
  2. FORTEO [Suspect]
     Indication: OSTEOPOROSIS
     Dosage: 20 UG, QD
     Dates: start: 20110615
  3. MULTI-VITAMIN [Concomitant]
  4. FORTEO [Suspect]
     Dosage: 20 UG, QD
  5. FORTEO [Suspect]
     Dosage: 20 UG, QD
     Route: 065
  6. FORTEO [Suspect]
     Dosage: 20 UG, QD
     Dates: end: 20120601
  7. HYDROCODONE BITARTRATE [Concomitant]
     Indication: PRODUCT USED FOR UNKNOWN INDICATION
  8. CALCIUM [Concomitant]

REACTIONS (12)
  - FATIGUE [None]
  - SCOLIOSIS [None]
  - OSTEOPOROSIS [None]
  - PAIN IN EXTREMITY [None]
  - MYALGIA [None]
  - LIMB DISCOMFORT [None]
  - KNEE ARTHROPLASTY [None]
  - BACK PAIN [None]
  - BONE PAIN [None]
  - ARTHRALGIA [None]
  - COMPRESSION FRACTURE [None]
  - BONE DENSITY DECREASED [None]
